FAERS Safety Report 12054005 (Version 2)
Quarter: 2017Q2

REPORT INFORMATION
  Report Type: Spontaneous
  Country: US (occurrence: US)
  Receive Date: 20160209
  Receipt Date: 20170503
  Transmission Date: 20170829
  Serious: No
  Sender: FDA-Public Use
  Company Number: US-SA-2015SA204476

PATIENT
  Sex: Female

DRUGS (2)
  1. ALIROCUMAB PREFILLED PEN [Concomitant]
     Active Substance: ALIROCUMAB
     Dates: start: 2015
  2. PRALUENT [Suspect]
     Active Substance: ALIROCUMAB
     Route: 058
     Dates: start: 2015

REACTIONS (3)
  - Joint swelling [Unknown]
  - Crepitations [Unknown]
  - Local swelling [Unknown]
